FAERS Safety Report 7064897-1 (Version None)
Quarter: 2010Q4

REPORT INFORMATION
  Report Type: 
  Country: None (occurrence: None)
  Receive Date: 20101027
  Receipt Date: 19900209
  Transmission Date: 20110411
  Serious: Yes (Death, Disabling)
  Sender: FDA-Public Use
  Company Number: US-ROCHE-900200185001

PATIENT
  Age: 41 Year
  Sex: Male
  Weight: 47.6 kg

DRUGS (2)
  1. ROFERON-A [Suspect]
     Indication: MULTIPLE MYELOMA
     Route: 058
     Dates: start: 19890315, end: 19890514
  2. ROFERON-A [Suspect]
     Route: 058
     Dates: start: 19890515, end: 19890528

REACTIONS (5)
  - CHILLS [None]
  - DECREASED APPETITE [None]
  - MALIGNANT NEOPLASM PROGRESSION [None]
  - PYREXIA [None]
  - SOMNOLENCE [None]
